FAERS Safety Report 19787821 (Version 1)
Quarter: 2021Q3

REPORT INFORMATION
  Report Type: Spontaneous
  Country: SE (occurrence: SE)
  Receive Date: 20210903
  Receipt Date: 20210903
  Transmission Date: 20211014
  Serious: Yes (Disabling)
  Sender: FDA-Public Use
  Company Number: SE-REGENERON PHARMACEUTICALS, INC.-2021-82353

PATIENT

DRUGS (1)
  1. EYLEA [Suspect]
     Active Substance: AFLIBERCEPT
     Indication: NEOVASCULAR AGE-RELATED MACULAR DEGENERATION
     Dosage: 40 MG/ML, TOTAL EYLEA DOSE AND LAST DOSE WERE NOT REPORTED
     Route: 047
     Dates: start: 20180423, end: 20210430

REACTIONS (2)
  - Gait disturbance [Recovered/Resolved with Sequelae]
  - Subcutaneous haematoma [Recovered/Resolved with Sequelae]

NARRATIVE: CASE EVENT DATE: 20180514
